FAERS Safety Report 10050295 (Version 1)
Quarter: 2014Q1

REPORT INFORMATION
  Report Type: Spontaneous
  Country: US (occurrence: None)
  Receive Date: 20140331
  Receipt Date: 20140331
  Transmission Date: 20141002
  Serious: Yes (Disabling, Other)
  Sender: FDA-Public Use
  Company Number: None

PATIENT
  Age: 43 Year
  Sex: Male
  Weight: 97.52 kg

DRUGS (1)
  1. VIOXX [Suspect]
     Indication: PROCEDURAL PAIN
     Dosage: 1 PILL  ONCE DAILY  TAKEN BY  MOUTH
     Route: 048
     Dates: start: 20021030, end: 20040607

REACTIONS (8)
  - Palpitations [None]
  - Back pain [None]
  - Haemorrhage [None]
  - Weight decreased [None]
  - Tremor [None]
  - Dysstasia [None]
  - Blood thyroid stimulating hormone decreased [None]
  - Arthritis [None]
